FAERS Safety Report 4883241-9 (Version None)
Quarter: 2006Q1

REPORT INFORMATION
  Report Type: 
  Country: None (occurrence: None)
  Receive Date: 20060112
  Receipt Date: 20060103
  Transmission Date: 20060701
  Serious: Yes (Hospitalization)
  Sender: FDA-Public Use
  Company Number: 13171

PATIENT
  Age: 57 Year
  Sex: Female
  Weight: 81.5 kg

DRUGS (5)
  1. METHOTREXATE [Suspect]
     Dosage: 10 MG PO
     Route: 048
     Dates: end: 20050506
  2. ENBREL [Suspect]
     Indication: RHEUMATOID ARTHRITIS
     Dosage: 25 MG WEEKLY SC
     Route: 058
     Dates: start: 20050501, end: 20050506
  3. PREDNISOLONE [Concomitant]
  4. OMEPRAZOLE [Concomitant]
  5. GLICLAZIDE [Concomitant]

REACTIONS (1)
  - HEPATITIS E [None]
